FAERS Safety Report 6641774-9 (Version None)
Quarter: 2010Q1

REPORT INFORMATION
  Report Type: 
  Country: None (occurrence: None)
  Receive Date: 20100316
  Receipt Date: 20100305
  Transmission Date: 20100710
  Serious: Yes (Other)
  Sender: FDA-Public Use
  Company Number: 2010US0002

PATIENT
  Age: 9 Year
  Sex: Male

DRUGS (7)
  1. ORFADIN [Suspect]
     Indication: NEUROBLASTOMA RECURRENT
     Dosage: 10 MG, 2 IN 1 D, ORAL
     Route: 048
     Dates: start: 20100108
  2. ORFADIN [Suspect]
     Indication: OFF LABEL USE
     Dosage: 10 MG, 2 IN 1 D, ORAL
     Route: 048
     Dates: start: 20100108
  3. RADIOTHERAPY(RADIOTHERAPY) [Suspect]
  4. MEROPENEM [Concomitant]
  5. NEXAVAR [Concomitant]
  6. DILAUDID (HYDROMORPHONE) (INJECTION) [Concomitant]
  7. OXYCONTIN (OXYCODONE) [Concomitant]

REACTIONS (4)
  - EPISTAXIS [None]
  - OFF LABEL USE [None]
  - PANCYTOPENIA [None]
  - PLATELET COUNT DECREASED [None]
